FAERS Safety Report 12935683 (Version 2)
Quarter: 2016Q4

REPORT INFORMATION
  Report Type: Spontaneous
  Country: US (occurrence: US)
  Receive Date: 20161114
  Receipt Date: 20161206
  Transmission Date: 20170207
  Serious: Yes (Life-Threatening, Hospitalization)
  Sender: FDA-Public Use
  Company Number: US-CIPLA LTD.-2016US21003

PATIENT

DRUGS (6)
  1. ZOCOR [Suspect]
     Active Substance: SIMVASTATIN
     Dosage: UNK
     Route: 065
  2. LOSARTAN. [Suspect]
     Active Substance: LOSARTAN
     Dosage: UNK
     Route: 065
  3. LOPRESSOR [Suspect]
     Active Substance: METOPROLOL TARTRATE
     Dosage: UNK
     Route: 065
  4. DOXAZOSIN [Suspect]
     Active Substance: DOXAZOSIN\DOXAZOSIN MESYLATE
     Dosage: UNK
     Route: 065
  5. ECOTRIN [Suspect]
     Active Substance: ASPIRIN
     Dosage: UNK
     Route: 065
  6. HYDRALAZINE HCL [Suspect]
     Active Substance: HYDRALAZINE HYDROCHLORIDE
     Indication: HYPERTENSION
     Dosage: 25 MG, BID, FOR 6 YEARS
     Route: 065

REACTIONS (8)
  - Respiratory failure [Recovering/Resolving]
  - Respiratory moniliasis [Recovering/Resolving]
  - Clostridium difficile infection [Recovered/Resolved]
  - Pulmonary alveolar haemorrhage [Unknown]
  - Pneumonia [Recovering/Resolving]
  - Glomerulonephritis rapidly progressive [Unknown]
  - Anti-neutrophil cytoplasmic antibody positive vasculitis [Unknown]
  - Pleural effusion [Unknown]
